FAERS Safety Report 5583579-6 (Version None)
Quarter: 2007Q4

REPORT INFORMATION
  Report Type: 
  Country: None (occurrence: None)
  Receive Date: 20071231
  Receipt Date: 20071222
  Transmission Date: 20080405
  Serious: Yes (Other)
  Sender: FDA-Public Use
  Company Number: CHPA2007US14503

PATIENT
  Age: 61 Year
  Sex: Male

DRUGS (4)
  1. MAALOX ANTACID; ANTIGAS MAX QDTABS ASST (NCH)(CALCIUM CARBONATE, SIMET [Suspect]
     Indication: GASTROOESOPHAGEAL REFLUX DISEASE
     Dosage: MINIMUM OF 1 TABLET FOR YEARS, ORAL
     Route: 048
     Dates: start: 20040601
  2. PLAVIX [Concomitant]
  3. ASPIRIN [Concomitant]
  4. LIPITOR /NET/ (ATORVASTATIN CALCIUM) [Concomitant]

REACTIONS (3)
  - CARDIAC DISORDER [None]
  - EPISTAXIS [None]
  - INTENTIONAL DRUG MISUSE [None]
